FAERS Safety Report 8960710 (Version 2)
Quarter: 2013Q3

REPORT INFORMATION
  Report Type: Spontaneous
  Country: US (occurrence: US)
  Receive Date: 20121212
  Receipt Date: 20130820
  Transmission Date: 20140515
  Serious: Yes (Other)
  Sender: FDA-Public Use
  Company Number: CHPA2012US024708

PATIENT
  Age: 70 Year
  Sex: Male

DRUGS (1)
  1. MAALOX ANTACID/ANTIGAS RS LIQ COOL MINT [Suspect]
     Indication: ABDOMINAL DISTENSION
     Dosage: 2 TSP, PRN
     Route: 048
     Dates: end: 201211

REACTIONS (4)
  - Type 2 diabetes mellitus [Not Recovered/Not Resolved]
  - Blood glucose increased [Recovered/Resolved]
  - Flatulence [Recovered/Resolved]
  - Abdominal distension [Recovered/Resolved]
